FAERS Safety Report 8334153-X (Version None)
Quarter: 2012Q2

REPORT INFORMATION
  Report Type: 
  Country: None (occurrence: None)
  Receive Date: 20120503
  Receipt Date: 20120430
  Transmission Date: 20120825
  Serious: Yes (Life-Threatening, Other)
  Sender: FDA-Public Use
  Company Number: GB-B.I. PHARMACEUTICALS,INC./RIDGEFIELD-2012-UK-00599UK

PATIENT
  Age: 54 Year
  Sex: Male
  Weight: 128.1 kg

DRUGS (8)
  1. LITHIUM CARBONATE [Suspect]
     Dosage: 400 MG
     Route: 048
  2. QUETIAPINE [Suspect]
     Dosage: 300 MG
     Route: 048
  3. ACETAMINOPHEN [Suspect]
     Dosage: 1 G
     Route: 048
  4. DESLORATADINE [Suspect]
     Dosage: 5 MG
     Route: 048
  5. CODEINE [Suspect]
     Dosage: 60 MG
     Route: 048
  6. SENNA-MINT WAF [Suspect]
     Dosage: 7.5 MG
     Route: 048
  7. PRADAXA [Suspect]
     Indication: THROMBOSIS PROPHYLAXIS
     Dosage: 220 MG
     Route: 048
     Dates: start: 20120327, end: 20120422
  8. AMLODIPINE [Suspect]
     Dosage: 10 MG
     Route: 048

REACTIONS (1)
  - DEEP VEIN THROMBOSIS [None]
